FAERS Safety Report 4761566-5 (Version None)
Quarter: 2005Q3

REPORT INFORMATION
  Report Type: 
  Country: None (occurrence: None)
  Receive Date: 20050826
  Receipt Date: 20050114
  Transmission Date: 20060218
  Serious: Yes (Other)
  Sender: FDA-Public Use
  Company Number: USA-2005-0018389

PATIENT
  Age: 42 Year
  Sex: Male

DRUGS (3)
  1. OXYCONTIN [Suspect]
  2. MARIJUANA (CANNABIS) [Suspect]
  3. ANXIOLYTICS [Suspect]

REACTIONS (3)
  - IMPAIRED DRIVING ABILITY [None]
  - POLYSUBSTANCE ABUSE [None]
  - ROAD TRAFFIC ACCIDENT [None]
